FAERS Safety Report 18071269 (Version 1)
Quarter: 2020Q3

REPORT INFORMATION
  Report Type: Spontaneous
  Country: US (occurrence: US)
  Receive Date: 20200725
  Receipt Date: 20200725
  Transmission Date: 20201103
  Serious: Yes (Other)
  Sender: FDA-Public Use
  Company Number: None

PATIENT
  Age: 40 Year
  Sex: Female
  Weight: 67.05 kg

DRUGS (1)
  1. BORN BASIC. ANTI?BAC HAND SANITIZER 65 PERCENT [Suspect]
     Active Substance: ALCOHOL
     Indication: INFECTION PROPHYLAXIS
     Dosage: ?          QUANTITY:500 DROP(S);?
     Route: 061
     Dates: start: 20200606, end: 20200719

REACTIONS (2)
  - Seizure [None]
  - Recalled product administered [None]

NARRATIVE: CASE EVENT DATE: 20200607
